FAERS Safety Report 4428592-7 (Version None)
Quarter: 2004Q3

REPORT INFORMATION
  Report Type: 
  Country: None (occurrence: None)
  Receive Date: 20040816
  Receipt Date: 20040803
  Transmission Date: 20050211
  Serious: Yes (Other)
  Sender: FDA-Public Use
  Company Number: 2004052440

PATIENT
  Age: 48 Year
  Sex: Female
  Weight: 76.2043 kg

DRUGS (5)
  1. ZOLOFT [Suspect]
     Indication: DEPRESSION
     Dates: start: 20040701
  2. ALPRAZOLAM [Concomitant]
  3. TEMAZEPAM [Concomitant]
  4. ZOLPIDEM TARTRATE [Concomitant]
  5. TRAZODONE HCL [Concomitant]

REACTIONS (7)
  - BLOOD CREATINE PHOSPHOKINASE INCREASED [None]
  - CONSTIPATION [None]
  - EATING DISORDER [None]
  - FATIGUE [None]
  - HYPERHIDROSIS [None]
  - INSOMNIA [None]
  - NIGHTMARE [None]
